FAERS Safety Report 7443946-2 (Version None)
Quarter: 2011Q2

REPORT INFORMATION
  Report Type: 
  Country: None (occurrence: None)
  Receive Date: 20110429
  Receipt Date: 20110419
  Transmission Date: 20111010
  Serious: Yes (Hospitalization)
  Sender: FDA-Public Use
  Company Number: US-BIOGENIDEC-2009BI002491

PATIENT
  Age: 47 Year
  Sex: Female

DRUGS (2)
  1. EPIDURAL [Concomitant]
  2. AVONEX [Suspect]
     Indication: MULTIPLE SCLEROSIS
     Route: 030
     Dates: start: 20060816

REACTIONS (4)
  - FEELING HOT [None]
  - OSTEONECROSIS [None]
  - INTERVERTEBRAL DISC PROTRUSION [None]
  - SLUGGISHNESS [None]
